FAERS Safety Report 5934147-5 (Version None)
Quarter: 2008Q4

REPORT INFORMATION
  Report Type: 
  Country: None (occurrence: None)
  Receive Date: 20081029
  Receipt Date: 20081024
  Transmission Date: 20090506
  Serious: Yes (Hospitalization)
  Sender: FDA-Public Use
  Company Number: A0753978A

PATIENT
  Age: 63 Year
  Sex: Male
  Weight: 81.8 kg

DRUGS (3)
  1. AVANDIA [Suspect]
     Indication: DIABETES MELLITUS
     Dosage: 8MG PER DAY
     Route: 048
     Dates: start: 20000124
  2. FORTAMET [Concomitant]
  3. HYZAAR [Concomitant]

REACTIONS (1)
  - MYOCARDIAL INFARCTION [None]
